FAERS Safety Report 24738241 (Version 5)
Quarter: 2025Q4

REPORT INFORMATION
  Report Type: Report from Study
  Country: JP (occurrence: JP)
  Receive Date: 20241216
  Receipt Date: 20251201
  Transmission Date: 20260117
  Serious: Yes (Hospitalization, Other)
  Sender: RECORDATI
  Company Number: JP-ORPHANEU-2024009800

PATIENT
  Age: 8 Year
  Sex: Female
  Weight: 17 kg

DRUGS (16)
  1. CARBAGLU [Suspect]
     Active Substance: CARGLUMIC ACID
     Indication: Hyperammonaemia
     Dosage: 800 MG/DAY (48 MG/KG/DAY)
     Route: 048
     Dates: start: 20190613, end: 20241117
  2. CARBAGLU [Suspect]
     Active Substance: CARGLUMIC ACID
     Indication: Propionic acidaemia
     Dosage: 1800 MG/DAILY, TID (MORNING, NOON, AND NIGHT)), ORAL OR NG TUBE
     Dates: start: 20241118
  3. CARBAGLU [Suspect]
     Active Substance: CARGLUMIC ACID
     Dosage: 1200 MG/DAILY, TID (MORNING, NOON, AND NIGHT)) ORAL OR NG TUBE
     Dates: start: 20241126
  4. CARBAGLU [Suspect]
     Active Substance: CARGLUMIC ACID
     Dosage: 800 MG/DAILY, TID (MORNING, NOON, AND NIGHT))
     Route: 048
     Dates: start: 20241128
  5. Cinal [Concomitant]
     Indication: Product used for unknown indication
     Dosage: 4.5 MILLIGRAM DAILY, TID
     Route: 048
     Dates: end: 20241208
  6. Cinal [Concomitant]
     Dosage: 6 GRAM DAILY, TID
     Route: 048
     Dates: start: 20241209
  7. ALINAMIN F [Concomitant]
     Active Substance: FURSULTIAMINE HYDROCHLORIDE
     Indication: Product used for unknown indication
     Dosage: 112.5 MILLIGRAM DAILY, TID
     Route: 048
     Dates: end: 20241208
  8. ALINAMIN F [Concomitant]
     Active Substance: FURSULTIAMINE HYDROCHLORIDE
     Dosage: 150 MILLIGRAM DAILY, TID
     Route: 048
     Dates: start: 20241209
  9. FLAGYL [Concomitant]
     Active Substance: METRONIDAZOLE\METRONIDAZOLE HYDROCHLORIDE
     Indication: Product used for unknown indication
     Dosage: 40 MG, TIW, TABLET
     Route: 048
  10. BIOTIN [Concomitant]
     Active Substance: BIOTIN
     Indication: Product used for unknown indication
     Dosage: 3 MILLIGRAM DAILY, TID
     Route: 048
     Dates: end: 20241208
  11. BIOTIN [Concomitant]
     Active Substance: BIOTIN
     Dosage: 6 MILLIGRAM DAILY, TID
     Route: 048
     Dates: start: 20241209
  12. SODIUM BENZOATE [Concomitant]
     Active Substance: SODIUM BENZOATE
     Indication: Product used for unknown indication
     Dosage: 3.3 GRAM DAILY, TID
     Route: 048
     Dates: start: 2015, end: 20190707
  13. SODIUM BENZOATE [Concomitant]
     Active Substance: SODIUM BENZOATE
     Dosage: 2.6 GRAM DAILY, TID
     Route: 048
     Dates: start: 20190708, end: 20190807
  14. SODIUM BENZOATE [Concomitant]
     Active Substance: SODIUM BENZOATE
     Dosage: 1.7 GRAM DAILY, TID
     Route: 048
     Dates: start: 20190808
  15. Elcartin [Concomitant]
     Indication: Product used for unknown indication
     Dosage: 30 MILLILITER DAILY, TID
     Route: 048
     Dates: end: 20230208
  16. Elcartin [Concomitant]
     Dosage: 60 MILLILITER DAILY, TID
     Route: 048
     Dates: start: 20230209

REACTIONS (7)
  - General physical health deterioration [Recovered/Resolved]
  - Depressed level of consciousness [Recovered/Resolved]
  - Seizure [Unknown]
  - Seizure [Unknown]
  - Seizure [Not Recovered/Not Resolved]
  - Anaemia [Unknown]
  - Therapeutic product effect incomplete [Recovered/Resolved]

NARRATIVE: CASE EVENT DATE: 20230406
